FAERS Safety Report 8598105-7 (Version None)
Quarter: 2012Q3

REPORT INFORMATION
  Report Type: 
  Country: None (occurrence: None)
  Receive Date: 20120816
  Receipt Date: 20120806
  Transmission Date: 20120928
  Serious: Yes (Other)
  Sender: FDA-Public Use
  Company Number: AT-CELGENEUS-009-21660-12080583

PATIENT
  Sex: Female

DRUGS (2)
  1. ABRAXANE [Suspect]
     Indication: OVARIAN CANCER
     Route: 065
  2. CARBOPLATIN [Concomitant]
     Indication: OVARIAN CANCER
     Route: 065

REACTIONS (3)
  - AORTIC THROMBOSIS [None]
  - PYREXIA [None]
  - ARTERIAL THROMBOSIS [None]
